FAERS Safety Report 9442449 (Version 2)
Quarter: 2013Q4

REPORT INFORMATION
  Report Type: Spontaneous
  Country: CY (occurrence: CY)
  Receive Date: 20130806
  Receipt Date: 20131104
  Transmission Date: 20140711
  Serious: Yes (Death, Other)
  Sender: FDA-Public Use
  Company Number: CY-ELI_LILLY_AND_COMPANY-CY201308000351

PATIENT
  Age: 85 Year
  Sex: Female

DRUGS (3)
  1. EFIENT [Suspect]
     Indication: ACUTE CORONARY SYNDROME
     Dosage: 60 MG, SINGLE
     Route: 065
     Dates: start: 201307, end: 201307
  2. EFIENT [Suspect]
     Indication: PERCUTANEOUS CORONARY INTERVENTION
  3. WARFARIN [Concomitant]
     Indication: AORTIC VALVE REPLACEMENT

REACTIONS (2)
  - Multi-organ failure [Fatal]
  - Haemorrhagic stroke [Unknown]
